FAERS Safety Report 25124713 (Version 1)
Quarter: 2025Q1

REPORT INFORMATION
  Report Type: Spontaneous
  Country: US (occurrence: US)
  Receive Date: 20250326
  Receipt Date: 20250326
  Transmission Date: 20250409
  Serious: Yes (Hospitalization, Other)
  Sender: ENDO
  Company Number: US-ENDO USA, INC.-2025-000575

PATIENT
  Age: 63 Year
  Sex: Male
  Weight: 90.4 kg

DRUGS (1)
  1. AMBRISENTAN [Suspect]
     Active Substance: AMBRISENTAN
     Indication: Pulmonary hypertension
     Route: 048
     Dates: start: 202205

REACTIONS (1)
  - Vertigo positional [Recovering/Resolving]

NARRATIVE: CASE EVENT DATE: 20241201
